FAERS Safety Report 6186143-3 (Version None)
Quarter: 2009Q2

REPORT INFORMATION
  Report Type: 
  Country: None (occurrence: None)
  Receive Date: 20090511
  Receipt Date: 20090501
  Transmission Date: 20091009
  Serious: Yes (Disabling)
  Sender: FDA-Public Use
  Company Number: GB-BRISTOL-MYERS SQUIBB COMPANY-14617138

PATIENT
  Age: 78 Year
  Sex: Male

DRUGS (5)
  1. SINEMET CR [Suspect]
     Indication: PARKINSON'S DISEASE
     Dosage: 1 DF- 1 DOSE/QID;
     Route: 048
  2. ASPIRIN [Concomitant]
  3. CITALOPRAM HYDROBROMIDE [Concomitant]
  4. DIAZEPAM [Concomitant]
  5. ROTIGOTINE [Concomitant]

REACTIONS (4)
  - CONFUSIONAL STATE [None]
  - DYSPNOEA [None]
  - HYPERVENTILATION [None]
  - MOBILITY DECREASED [None]
